FAERS Safety Report 19482406 (Version 2)
Quarter: 2021Q3

REPORT INFORMATION
  Report Type: Spontaneous
  Country: JP (occurrence: JP)
  Receive Date: 20210701
  Receipt Date: 20210817
  Transmission Date: 20211014
  Serious: Yes (Other)
  Sender: FDA-Public Use
  Company Number: JP-PFIZER INC-2021739606

PATIENT

DRUGS (1)
  1. GENOTROPIN GOQUICK [Suspect]
     Active Substance: SOMATROPIN
     Dosage: 0.6 MG
     Route: 058

REACTIONS (5)
  - Needle issue [Unknown]
  - Haemorrhage [Unknown]
  - Injury associated with device [Unknown]
  - Exposure via direct contact [Unknown]
  - Accidental exposure to product [Unknown]
